FAERS Safety Report 6960633-5 (Version None)
Quarter: 2010Q3

REPORT INFORMATION
  Report Type: 
  Country: None (occurrence: None)
  Receive Date: 20100901
  Receipt Date: 20100824
  Transmission Date: 20110219
  Serious: Yes (Hospitalization)
  Sender: FDA-Public Use
  Company Number: US-GILEAD-2010-0031098

PATIENT
  Age: 74 Year
  Sex: Female
  Weight: 74.002 kg

DRUGS (29)
  1. LETAIRIS [Suspect]
     Indication: PULMONARY ARTERIAL HYPERTENSION
     Route: 048
     Dates: start: 20100807
  2. CARTIA XT [Concomitant]
  3. LIPITOR [Concomitant]
  4. COUMADIN [Concomitant]
  5. FUROSEMIDE [Concomitant]
  6. NITROGLYCERIN [Concomitant]
  7. ALBUTEROL [Concomitant]
  8. PULMICORT [Concomitant]
  9. ATROVENT [Concomitant]
  10. ADVAIR DISKUS 100/50 [Concomitant]
  11. SYNTHROID [Concomitant]
  12. CYMBALTA [Concomitant]
  13. LORAZEPAM [Concomitant]
  14. ZOVIRAX [Concomitant]
  15. BENAZEPRIL HYDROCHLORIDE [Concomitant]
  16. ACIPHEX [Concomitant]
  17. CREON DR [Concomitant]
  18. PRIMIDONE [Concomitant]
  19. ACTONEL [Concomitant]
  20. PROMETHAZINE [Concomitant]
  21. HYDROCODONE [Concomitant]
  22. AF-TUSSIN [Concomitant]
  23. DULCOLAX [Concomitant]
  24. LACTULOSE [Concomitant]
  25. GAS-X WITH MAALOX [Concomitant]
  26. KLOR-CON [Concomitant]
  27. FERROUS SULFATE [Concomitant]
  28. GNP SUPER B [Concomitant]
  29. ASCORBIC ACID [Concomitant]

REACTIONS (1)
  - BRONCHITIS VIRAL [None]
